FAERS Safety Report 22308958 (Version 1)
Quarter: 2023Q2

REPORT INFORMATION
  Report Type: Spontaneous
  Country: CN (occurrence: CN)
  Receive Date: 20230511
  Receipt Date: 20230511
  Transmission Date: 20230721
  Serious: Yes (Hospitalization)
  Sender: FDA-Public Use
  Company Number: CN-PFIZER INC-PV202300081816

PATIENT
  Age: 64 Year
  Sex: Female
  Weight: 48 kg

DRUGS (2)
  1. DACOMITINIB [Suspect]
     Active Substance: DACOMITINIB
     Indication: Lung adenocarcinoma
     Dosage: 45 MG, DAILY
     Route: 048
     Dates: start: 20221128
  2. DACOMITINIB [Suspect]
     Active Substance: DACOMITINIB
     Dosage: 45 MG, 1X/DAY
     Route: 048
     Dates: start: 20230414, end: 20230418

REACTIONS (12)
  - Rash erythematous [Recovering/Resolving]
  - Neutrophil count decreased [Recovering/Resolving]
  - Paronychia [Recovering/Resolving]
  - Dry skin [Unknown]
  - Scab [Unknown]
  - Oral mucosal erythema [Unknown]
  - Pharyngeal erythema [Unknown]
  - Skin haemorrhage [Unknown]
  - White blood cell count decreased [Unknown]
  - Mouth haemorrhage [Recovered/Resolved]
  - Epistaxis [Recovered/Resolved]
  - Pruritus [Recovering/Resolving]

NARRATIVE: CASE EVENT DATE: 20230101
